FAERS Safety Report 7272925-3 (Version None)
Quarter: 2011Q1

REPORT INFORMATION
  Report Type: 
  Country: None (occurrence: None)
  Receive Date: 20110203
  Receipt Date: 20110124
  Transmission Date: 20110831
  Serious: Yes (Other)
  Sender: FDA-Public Use
  Company Number: US-MYLANLABS-2011S1001663

PATIENT
  Sex: Male
  Weight: 95.26 kg

DRUGS (6)
  1. RANITIDINE  TABLETS, USP [Suspect]
     Indication: HERNIA
  2. PREVACID [Suspect]
     Indication: GASTROOESOPHAGEAL REFLUX DISEASE
  3. PREVACID [Suspect]
     Indication: HERNIA
  4. CELEBREX [Suspect]
     Indication: ARTHRITIS
     Route: 048
     Dates: end: 20100201
  5. VIAGRA [Concomitant]
  6. RANITIDINE  TABLETS, USP [Suspect]
     Indication: GASTROOESOPHAGEAL REFLUX DISEASE

REACTIONS (4)
  - ULCER [None]
  - GASTROINTESTINAL DISORDER [None]
  - ARTHROPATHY [None]
  - OEDEMA PERIPHERAL [None]
